FAERS Safety Report 4804098-8 (Version None)
Quarter: 2005Q4

REPORT INFORMATION
  Report Type: 
  Country: None (occurrence: None)
  Receive Date: 20051014
  Receipt Date: 20051003
  Transmission Date: 20060501
  Serious: Yes (Other)
  Sender: FDA-Public Use
  Company Number: HQWYE816004OCT05

PATIENT
  Age: 65 Year
  Sex: Male

DRUGS (1)
  1. RAPAMUNE [Suspect]
     Indication: IMMUNOSUPPRESSANT DRUG THERAPY
     Dates: end: 20050101

REACTIONS (8)
  - ANAEMIA [None]
  - GASTRIC ULCER [None]
  - GASTROINTESTINAL ARTERIOVENOUS MALFORMATION [None]
  - HAEMATOCHEZIA [None]
  - IMPAIRED HEALING [None]
  - INFLAMMATION [None]
  - NODULE [None]
  - PEPTIC ULCER [None]
